FAERS Safety Report 20344251 (Version 1)
Quarter: 2022Q1

REPORT INFORMATION
  Report Type: Spontaneous
  Country: NL (occurrence: NL)
  Receive Date: 20220118
  Receipt Date: 20220118
  Transmission Date: 20220423
  Serious: Yes (Hospitalization)
  Sender: FDA-Public Use
  Company Number: None

PATIENT
  Age: 82 Year
  Sex: Male
  Weight: 80 kg

DRUGS (8)
  1. ZOLEDRONIC ACID [Suspect]
     Active Substance: ZOLEDRONIC ACID
     Indication: Osteoporosis
     Dosage: ONE-TIME 1 DOSE OF 5MG IV; THERAPY END DATE: ASKU;  ZOLEDRONIC ACID INFVLST 0.04MG/ML
     Route: 042
     Dates: start: 20150529
  2. CRESTOR [Concomitant]
     Active Substance: ROSUVASTATIN CALCIUM
     Dosage: 20 MILLIGRAM DAILY; EXTRA INFO: 20 MG; THERAPY START AND END DATE: ASKU; CRESTOR TABLET FILM COATED
  3. BICALUTAMIDE [Concomitant]
     Active Substance: BICALUTAMIDE
     Dosage: 50 MILLIGRAM DAILY; EXTRA INFO: 50 MG; THERAPY START AND END DATE: ASKU
  4. ELIGARD [Concomitant]
     Active Substance: LEUPROLIDE ACETATE
     Dosage: THERAPY START AND END DATE: ASKU; ELIGARD INJPDR WWSP 7.5MG + SOLVENS
  5. TRANXENE [Concomitant]
     Active Substance: CLORAZEPATE DIPOTASSIUM
     Dosage: 5 MILLIGRAM DAILY; EXTRA INFO: 5MG; THERAPY START AND END DATE: ASKU
  6. PANTOPRAZOLE SODIUM [Concomitant]
     Active Substance: PANTOPRAZOLE SODIUM
     Dosage: 40 MILLIGRAM DAILY; EXTRA INFO: 40MG; THERAPY START AND END DATE: ASKU
  7. ASPIRIN [Concomitant]
     Active Substance: ASPIRIN
     Dosage: 80 MILLIGRAM DAILY; EXTRA INFO: 80MG; THERAPY START AND END DATE: ASKU
  8. IRBESARTAN/HCT [Concomitant]
     Dosage: 1 DOSAGE FORMS DAILY; EXTRA INFO: 300MG/12.5MG; THERAPY START AND END DATE: ASKU

REACTIONS (2)
  - Acute kidney injury [Recovering/Resolving]
  - Inflammation [Recovered/Resolved]

NARRATIVE: CASE EVENT DATE: 20150530
